FAERS Safety Report 4779484-5 (Version None)
Quarter: 2005Q3

REPORT INFORMATION
  Report Type: 
  Country: None (occurrence: None)
  Receive Date: 20050922
  Receipt Date: 20041025
  Transmission Date: 20060218
  Serious: Yes (Other)
  Sender: FDA-Public Use
  Company Number: 2004075240

PATIENT
  Age: 40 Year
  Sex: Male

DRUGS (1)
  1. ZYRTEC [Suspect]
     Indication: URTICARIA
     Dosage: 10 MG (10 MG, 1 IN D), ORAL
     Route: 048
     Dates: start: 20040917, end: 20040927

REACTIONS (1)
  - CONJUNCTIVAL HAEMORRHAGE [None]
